FAERS Safety Report 17673675 (Version 1)
Quarter: 2020Q2

REPORT INFORMATION
  Report Type: Spontaneous
  Country: US (occurrence: US)
  Receive Date: 20200415
  Receipt Date: 20200415
  Transmission Date: 20200714
  Serious: Yes (Other)
  Sender: FDA-Public Use
  Company Number: US-PFIZER INC-2020107109

PATIENT
  Age: 71 Year
  Sex: Female
  Weight: 70.31 kg

DRUGS (6)
  1. ROBITUSSIN HONEY MAXIMUM STRENGTH NIGHTTIME COUGH DM [Suspect]
     Active Substance: DEXTROMETHORPHAN HYDROBROMIDE\DOXYLAMINE SUCCINATE
     Indication: COUGH
     Dosage: 20 ML, SINGLE
     Dates: start: 20200309, end: 20200309
  2. ROBITUSSIN HONEY MAXIMUM STRENGTH NIGHTTIME COUGH DM [Suspect]
     Active Substance: DEXTROMETHORPHAN HYDROBROMIDE\DOXYLAMINE SUCCINATE
     Indication: THROAT IRRITATION
  3. ROBITUSSIN HONEY MAXIMUM STRENGTH NIGHTTIME COUGH DM [Suspect]
     Active Substance: DEXTROMETHORPHAN HYDROBROMIDE\DOXYLAMINE SUCCINATE
     Indication: PULMONARY CONGESTION
  4. ROBITUSSIN HONEY MAXIMUM STRENGTH COUGH AND CHEST CONGESTION DM [Suspect]
     Active Substance: DEXTROMETHORPHAN HYDROBROMIDE\GUAIFENESIN
     Indication: PULMONARY CONGESTION
     Dosage: UNK
  5. ROBITUSSIN HONEY MAXIMUM STRENGTH COUGH AND CHEST CONGESTION DM [Suspect]
     Active Substance: DEXTROMETHORPHAN HYDROBROMIDE\GUAIFENESIN
     Indication: COUGH
     Dosage: 20 ML, SINGLE
     Route: 048
     Dates: start: 20200309, end: 20200309
  6. ROBITUSSIN HONEY MAXIMUM STRENGTH COUGH AND CHEST CONGESTION DM [Suspect]
     Active Substance: DEXTROMETHORPHAN HYDROBROMIDE\GUAIFENESIN
     Indication: THROAT IRRITATION

REACTIONS (9)
  - Pain [Unknown]
  - Hypokinesia [Unknown]
  - Blood pressure increased [Unknown]
  - Discomfort [Unknown]
  - Painful respiration [Not Recovered/Not Resolved]
  - Chest pain [Not Recovered/Not Resolved]
  - Dyspnoea [Not Recovered/Not Resolved]
  - Shock [Unknown]
  - Oropharyngeal pain [Unknown]

NARRATIVE: CASE EVENT DATE: 20200310
